FAERS Safety Report 17955037 (Version 2)
Quarter: 2020Q3

REPORT INFORMATION
  Report Type: Spontaneous
  Country: US (occurrence: US)
  Receive Date: 20200629
  Receipt Date: 20200912
  Transmission Date: 20201103
  Serious: No
  Sender: FDA-Public Use
  Company Number: US-009507513-2006USA010278

PATIENT
  Sex: Female

DRUGS (2)
  1. NEXPLANON [Suspect]
     Active Substance: ETONOGESTREL
     Indication: CONTRACEPTION
     Dosage: 1 IMPLANT (68 MILLIGRAM (MG)), ONE TIME, LEFT UPPER ARM
     Route: 059
     Dates: start: 20190801, end: 20200519
  2. NEXPLANON [Suspect]
     Active Substance: ETONOGESTREL
     Dosage: 1 IIMPLANT
     Route: 059
     Dates: start: 20160801, end: 20190801

REACTIONS (1)
  - Menorrhagia [Unknown]
